FAERS Safety Report 14956468 (Version 3)
Quarter: 2019Q1

REPORT INFORMATION
  Report Type: Report from Study
  Country: US (occurrence: US)
  Receive Date: 20180531
  Receipt Date: 20190330
  Transmission Date: 20190417
  Serious: Yes (Other)
  Sender: FDA-Public Use
  Company Number: PHHY2018US008458

PATIENT
  Age: 30 Year
  Sex: Female

DRUGS (1)
  1. GILENYA [Suspect]
     Active Substance: FINGOLIMOD HYDROCHLORIDE
     Indication: MULTIPLE SCLEROSIS
     Dosage: UNK, QD
     Route: 048

REACTIONS (16)
  - Paraesthesia [Unknown]
  - Headache [Unknown]
  - Hot flush [Unknown]
  - Palpitations [Recovered/Resolved]
  - Concomitant disease aggravated [Unknown]
  - Bladder disorder [Unknown]
  - Gait disturbance [Unknown]
  - Anxiety [Recovered/Resolved]
  - Fatigue [Unknown]
  - Lymphopenia [Unknown]
  - Disturbance in attention [Unknown]
  - Constipation [Unknown]
  - Alanine aminotransferase decreased [Unknown]
  - Spinal pain [Unknown]
  - Gastrooesophageal reflux disease [Unknown]
  - Balance disorder [Unknown]

NARRATIVE: CASE EVENT DATE: 20171112
